FAERS Safety Report 8623592-5 (Version None)
Quarter: 2012Q3

REPORT INFORMATION
  Report Type: 
  Country: None (occurrence: None)
  Receive Date: 20120827
  Receipt Date: 20120820
  Transmission Date: 20120928
  Serious: Yes (Death, Hospitalization)
  Sender: FDA-Public Use
  Company Number: AT-B.I. PHARMACEUTICALS,INC./RIDGEFIELD-2012-AP-00698AP

PATIENT
  Age: 89 Year
  Sex: Female
  Weight: 70 kg

DRUGS (2)
  1. ASPIRIN [Suspect]
     Dosage: 100 MG
  2. PRADAXA [Suspect]
     Indication: ATRIAL FIBRILLATION
     Dosage: 220 MG

REACTIONS (2)
  - RIB FRACTURE [None]
  - HAEMOTHORAX [None]
